FAERS Safety Report 4738802-4 (Version None)
Quarter: 2005Q3

REPORT INFORMATION
  Report Type: 
  Country: None (occurrence: None)
  Receive Date: 20050804
  Receipt Date: 20050530
  Transmission Date: 20060218
  Serious: Yes (Hospitalization, Other)
  Sender: FDA-Public Use
  Company Number: 2005083005

PATIENT
  Age: 71 Year
  Sex: Female
  Weight: 52 kg

DRUGS (6)
  1. NEURONTIN [Suspect]
     Indication: ABNORMAL BEHAVIOUR
     Dosage: 1200 MG , ORAL
     Route: 048
     Dates: start: 20050418, end: 20050428
  2. SEROTONIN (SEROTONIN) [Concomitant]
  3. SEROPRAM (CITALOPRAM HYDROBROMIDE0 [Concomitant]
  4. SOLIAN (AMISULPRIDE) [Concomitant]
  5. DUPHALAC [Concomitant]
  6. FORLAX (MACROGOL0 [Concomitant]

REACTIONS (2)
  - EPILEPSY [None]
  - FALL [None]
